FAERS Safety Report 14064486 (Version 2)
Quarter: 2018Q1

REPORT INFORMATION
  Report Type: Spontaneous
  Country: CA (occurrence: CA)
  Receive Date: 20171009
  Receipt Date: 20180118
  Transmission Date: 20180508
  Serious: Yes (Other)
  Sender: FDA-Public Use
  Company Number: CA-SA-2017SA182640

PATIENT
  Sex: Female

DRUGS (9)
  1. PLAQUENIL [Suspect]
     Active Substance: HYDROXYCHLOROQUINE SULFATE
     Indication: RHEUMATOID ARTHRITIS
     Route: 048
  2. ARAVA [Suspect]
     Active Substance: LEFLUNOMIDE
     Route: 048
  3. ORENCIA [Concomitant]
     Active Substance: ABATACEPT
     Route: 065
     Dates: start: 2014, end: 2014
  4. SODIUM AUROTHIOMALATE [Suspect]
     Active Substance: GOLD SODIUM THIOMALATE
     Indication: RHEUMATOID ARTHRITIS
     Route: 051
  5. ENBREL [Concomitant]
     Active Substance: ETANERCEPT
     Route: 065
     Dates: start: 200408, end: 201109
  6. XELJANZ [Concomitant]
     Active Substance: TOFACITINIB CITRATE
  7. METHOTREXATE. [Concomitant]
     Active Substance: METHOTREXATE
  8. SIMPONI [Concomitant]
     Active Substance: GOLIMUMAB
     Dosage: FORM:SOLUTION SUBCUTANEOUS
     Route: 065
     Dates: start: 201111, end: 201606
  9. HUMIRA [Suspect]
     Active Substance: ADALIMUMAB
     Dosage: SOLUTION?SUBCUTANEOUS
     Route: 058

REACTIONS (7)
  - Hypersensitivity [Unknown]
  - Adverse drug reaction [Unknown]
  - Pneumonitis [Unknown]
  - Pneumonia [Unknown]
  - Renal impairment [Not Recovered/Not Resolved]
  - Drug ineffective [Unknown]
  - Rheumatoid arthritis [Not Recovered/Not Resolved]
